FAERS Safety Report 18944425 (Version 1)
Quarter: 2021Q1

REPORT INFORMATION
  Report Type: Spontaneous
  Country: US (occurrence: US)
  Receive Date: 20210225
  Receipt Date: 20210225
  Transmission Date: 20210420
  Serious: Yes (Life-Threatening, Disabling, Other)
  Sender: FDA-Public Use
  Company Number: None

PATIENT
  Age: 48 Year
  Sex: Male
  Weight: 145.15 kg

DRUGS (14)
  1. BOTEX [Concomitant]
  2. PAYADY EYE DROPS [Concomitant]
  3. VOLTOREN GEL [Concomitant]
  4. ALLERGY DROPS [Concomitant]
  5. QBRELIS [Concomitant]
     Active Substance: LISINOPRIL
  6. TYLENOL [Concomitant]
     Active Substance: ACETAMINOPHEN
  7. BENADRYL DYE FREE [Concomitant]
  8. DICLOFENAC SODIUM 1% GEL?GENERIC FORM [Suspect]
     Active Substance: DICLOFENAC SODIUM
     Indication: PRODUCT USED FOR UNKNOWN INDICATION
     Dosage: ?  ;OTHER FREQUENCY:DAILY OR AS NEEDED;?
     Route: 061
     Dates: start: 20180105, end: 20200304
  9. HYDROXYZINE [Concomitant]
     Active Substance: HYDROXYZINE HYDROCHLORIDE
  10. GABAPENTIN LIQUID [Concomitant]
  11. INSLIN ? LANTUS [Concomitant]
  12. LIQUID TEARS [Concomitant]
     Active Substance: CARBOXYMETHYLCELLULOSE
  13. EPIPEN [Concomitant]
     Active Substance: EPINEPHRINE
  14. IMITEX SPRAY [Concomitant]

REACTIONS (6)
  - Skin disorder [None]
  - Application site rash [None]
  - Application site erythema [None]
  - Anaphylactic shock [None]
  - Product substitution issue [None]
  - Application site burn [None]

NARRATIVE: CASE EVENT DATE: 20180105
